FAERS Safety Report 5146332-3 (Version None)
Quarter: 2006Q4

REPORT INFORMATION
  Report Type: 
  Country: None (occurrence: None)
  Receive Date: 20061102
  Receipt Date: 20061019
  Transmission Date: 20070319
  Serious: Yes (Hospitalization, Other)
  Sender: FDA-Public Use
  Company Number: 2006115862

PATIENT
  Age: 12 Year
  Sex: Female
  Weight: 34 kg

DRUGS (5)
  1. VFEND [Suspect]
     Indication: BRONCHOPULMONARY ASPERGILLOSIS
     Dosage: 480 MG (240 MG, 2 IN 1 D), ORAL
     Route: 048
     Dates: start: 20060301
  2. ONCASPAR [Concomitant]
  3. DANAPAROID SODIUM (DANAPAROID SODIUM) [Concomitant]
  4. OMEPRAZOLE [Concomitant]
  5. METHOTREXATE [Concomitant]

REACTIONS (3)
  - ERYTHEMA [None]
  - RASH [None]
  - SKIN DEPIGMENTATION [None]
